FAERS Safety Report 25437137 (Version 1)
Quarter: 2025Q2

REPORT INFORMATION
  Report Type: Spontaneous
  Country: PL (occurrence: PL)
  Receive Date: 20250615
  Receipt Date: 20250615
  Transmission Date: 20250716
  Serious: Yes (Life-Threatening)
  Sender: TAKEDA
  Company Number: None

PATIENT
  Age: 1 Year
  Sex: Male
  Weight: 13 kg

DRUGS (2)
  1. KIOVIG [Suspect]
     Active Substance: HUMAN IMMUNOGLOBULIN G
     Indication: Kawasaki^s disease
  2. KIOVIG [Suspect]
     Active Substance: HUMAN IMMUNOGLOBULIN G
     Indication: Multisystem inflammatory syndrome in children

REACTIONS (6)
  - Restlessness [Recovered/Resolved]
  - Tremor [Recovered/Resolved]
  - Tachycardia [Recovered/Resolved]
  - Tachypnoea [Recovered/Resolved]
  - Body temperature increased [Recovered/Resolved]
  - Lividity [Recovered/Resolved]

NARRATIVE: CASE EVENT DATE: 20210121
